FAERS Safety Report 7494440-4 (Version None)
Quarter: 2011Q2

REPORT INFORMATION
  Report Type: 
  Country: None (occurrence: None)
  Receive Date: 20110520
  Receipt Date: 20110516
  Transmission Date: 20111010
  Serious: Yes (Hospitalization)
  Sender: FDA-Public Use
  Company Number: US-ABBOTT-11P-163-0726242-00

PATIENT
  Sex: Female

DRUGS (4)
  1. HUMIRA [Suspect]
     Indication: PSORIATIC ARTHROPATHY
     Dates: start: 20100901
  2. HUMIRA [Suspect]
     Dates: end: 20100501
  3. PREDNISONE [Suspect]
     Indication: BRONCHITIS
     Dates: start: 20100501, end: 20100501
  4. UNKNOWN MEDICATION [Concomitant]
     Indication: BLOOD PRESSURE

REACTIONS (7)
  - HYPERTENSION [None]
  - HAEMATOMA [None]
  - BLOOD PRESSURE INCREASED [None]
  - UPPER RESPIRATORY TRACT INFECTION [None]
  - BRONCHITIS [None]
  - HEAT STROKE [None]
  - COUGH [None]
